FAERS Safety Report 20773533 (Version 1)
Quarter: 2022Q2

REPORT INFORMATION
  Report Type: Spontaneous
  Country: US (occurrence: US)
  Receive Date: 20220502
  Receipt Date: 20220502
  Transmission Date: 20220721
  Serious: Yes (Hospitalization)
  Sender: FDA-Public Use
  Company Number: US-PFIZER INC-202200610906

PATIENT
  Age: 46 Year
  Sex: Female

DRUGS (1)
  1. EPINEPHRINE [Suspect]
     Active Substance: EPINEPHRINE
     Indication: Respiratory distress
     Dosage: 1 MG (ADMINISTERED OVER FIVE MINUTES AT A 0.1 MG/30 SECONDS)
     Route: 042

REACTIONS (2)
  - Cardiac arrest [Unknown]
  - Headache [Unknown]
